FAERS Safety Report 4955719-0 (Version None)
Quarter: 2006Q1

REPORT INFORMATION
  Report Type: 
  Country: None (occurrence: None)
  Receive Date: 20060328
  Receipt Date: 20060316
  Transmission Date: 20060701
  Serious: Yes (Death)
  Sender: FDA-Public Use
  Company Number: US-ROCHE-440984

PATIENT
  Age: 51 Year
  Sex: Male

DRUGS (1)
  1. FUZEON [Suspect]
     Dosage: STRENGTH AND DOSE REPORTED AS 90 MG/1ML.
     Route: 058

REACTIONS (1)
  - LYMPHOMA [None]
